FAERS Safety Report 7790452-1 (Version None)
Quarter: 2011Q3

REPORT INFORMATION
  Report Type: 
  Country: None (occurrence: None)
  Receive Date: 20110930
  Receipt Date: 20110921
  Transmission Date: 20111222
  Serious: Yes (Other)
  Sender: FDA-Public Use
  Company Number: FR-JNJFOC-20110811559

PATIENT
  Age: 62 Year
  Sex: Male
  Weight: 74 kg

DRUGS (5)
  1. REMICADE [Suspect]
     Indication: COLITIS ULCERATIVE
     Route: 042
     Dates: start: 20110513
  2. REMICADE [Suspect]
     Route: 042
     Dates: start: 20110803
  3. REMICADE [Suspect]
     Route: 042
     Dates: start: 20110608
  4. WARFARIN SODIUM [Interacting]
     Indication: PRODUCT USED FOR UNKNOWN INDICATION
     Dosage: 2 TABLETS DAILY
  5. WARFARIN SODIUM [Interacting]
     Dosage: INCREASED TO 3  TABLETS DAILY

REACTIONS (1)
  - DRUG INTERACTION [None]
